FAERS Safety Report 4447244-0 (Version None)
Quarter: 2004Q3

REPORT INFORMATION
  Report Type: 
  Country: None (occurrence: None)
  Receive Date: 20040908
  Receipt Date: 20040908
  Transmission Date: 20050211
  Serious: Yes (Hospitalization)
  Sender: FDA-Public Use
  Company Number: None

PATIENT
  Age: 76 Year
  Sex: Male

DRUGS (3)
  1. METOPROLOL SR [Suspect]
     Indication: HYPERTENSION
     Dosage: 50 MG QD
     Dates: start: 20010801
  2. CLARITIN [Concomitant]
  3. WARFARIN SODIUM [Concomitant]

REACTIONS (1)
  - HYPOTENSION [None]
